FAERS Safety Report 9998329 (Version 1)
Quarter: 2014Q1

REPORT INFORMATION
  Report Type: Spontaneous
  Country: NL (occurrence: NL)
  Receive Date: 20140312
  Receipt Date: 20140312
  Transmission Date: 20141002
  Serious: Yes (Hospitalization)
  Sender: FDA-Public Use
  Company Number: NL-AMGEN-NLDSP2011070654

PATIENT
  Age: 67 Year
  Sex: Female

DRUGS (1)
  1. ARANESP [Suspect]
     Indication: ANAEMIA
     Dosage: 20 MUG, Q3WK
     Route: 058
     Dates: start: 20110505

REACTIONS (1)
  - Investigation [Unknown]
